FAERS Safety Report 17222284 (Version 1)
Quarter: 2020Q1

REPORT INFORMATION
  Report Type: Spontaneous
  Country: US (occurrence: US)
  Receive Date: 20191231
  Receipt Date: 20191231
  Transmission Date: 20200409
  Serious: Yes (Other)
  Sender: FDA-Public Use
  Company Number: None

PATIENT
  Age: 64 Year
  Sex: Male

DRUGS (15)
  1. TIROSINT [Concomitant]
     Active Substance: LEVOTHYROXINE SODIUM
  2. VITAMIN D [Concomitant]
     Active Substance: VITAMIN D NOS
  3. HYDROCO/APAP [Concomitant]
     Active Substance: ACETAMINOPHEN\HYDROCODONE
  4. SMZ/TMP DS [Concomitant]
     Active Substance: SULFAMETHOXAZOLE\TRIMETHOPRIM
  5. FUROSEMIDE. [Concomitant]
     Active Substance: FUROSEMIDE
  6. TRIAMCINOLON [Concomitant]
  7. ROSUVASTATIN. [Concomitant]
     Active Substance: ROSUVASTATIN
  8. CICLOPIROX. [Concomitant]
     Active Substance: CICLOPIROX
  9. LEVOFLOXACIN. [Concomitant]
     Active Substance: LEVOFLOXACIN
  10. CEPHALEXIN. [Concomitant]
     Active Substance: CEPHALEXIN
  11. HUMIRA [Suspect]
     Active Substance: ADALIMUMAB
     Indication: PSORIASIS
     Dosage: ?          OTHER FREQUENCY:EVERY OTHER WEEK;?
     Route: 058
     Dates: start: 20191216
  12. FLUCONAZOLE. [Concomitant]
     Active Substance: FLUCONAZOLE
  13. TRULICITY [Concomitant]
     Active Substance: DULAGLUTIDE
  14. NYSTOP [Concomitant]
     Active Substance: NYSTATIN
  15. XOFLUZA [Concomitant]
     Active Substance: BALOXAVIR MARBOXIL

REACTIONS (2)
  - Condition aggravated [None]
  - Therapy cessation [None]
